FAERS Safety Report 4938540-9 (Version None)
Quarter: 2006Q1

REPORT INFORMATION
  Report Type: 
  Country: None (occurrence: None)
  Receive Date: 20060306
  Receipt Date: 20060301
  Transmission Date: 20060701
  Serious: Yes (Other)
  Sender: FDA-Public Use
  Company Number: US-2006-004346

PATIENT
  Age: 47 Year
  Sex: Female

DRUGS (1)
  1. MAGNEVIST [Suspect]
     Indication: NUCLEAR MAGNETIC RESONANCE IMAGING
     Dosage: 20 ML 1 DOSE INTRAVENOUS
     Route: 042
     Dates: start: 20060228, end: 20060228

REACTIONS (5)
  - CARDIO-RESPIRATORY ARREST [None]
  - DYSPHONIA [None]
  - LARYNGOSPASM [None]
  - RESPIRATORY DISTRESS [None]
  - VOMITING [None]
